FAERS Safety Report 8097058-8 (Version None)
Quarter: 2012Q1

REPORT INFORMATION
  Report Type: 
  Country: None (occurrence: None)
  Receive Date: 20120131
  Receipt Date: 20120124
  Transmission Date: 20120608
  Serious: Yes (Hospitalization)
  Sender: FDA-Public Use
  Company Number: DE-BRISTOL-MYERS SQUIBB COMPANY-16346678

PATIENT
  Age: 59 Year
  Sex: Male

DRUGS (10)
  1. LEVOFLOXACIN [Concomitant]
     Dates: start: 20111224, end: 20120102
  2. BETAMETHASONE VALERATE [Concomitant]
     Dosage: FORMULATION:CREAM
     Dates: start: 20120103
  3. IRINOTECAN HCL [Suspect]
     Indication: COLORECTAL CANCER METASTATIC
     Dosage: MOST RECENT INF:27DEC11
     Route: 042
     Dates: start: 20111122
  4. FLUOROURACIL [Suspect]
     Indication: COLORECTAL CANCER METASTATIC
     Dosage: MOST RECENT INF:27DEC11
     Route: 042
     Dates: start: 20111122
  5. RAMIPRIL [Concomitant]
     Dosage: 1DF:5/25  1/2 (0.5)
  6. IBUPROFEN [Concomitant]
     Dosage: FREQ: (0-0-1)
     Dates: start: 20111029
  7. CETUXIMAB [Suspect]
     Indication: COLORECTAL CANCER METASTATIC
     Dosage: MOST RECENT INF:27DEC11
     Route: 042
     Dates: start: 20111122
  8. LEUCOVORIN CALCIUM [Suspect]
     Indication: COLORECTAL CANCER METASTATIC
     Dosage: MOST RECENT INF:27DEC11
     Route: 042
     Dates: start: 20111122
  9. DOXYCYCLINE [Concomitant]
     Dates: start: 20111122
  10. OPIPRAMOL [Concomitant]
     Dates: start: 20111121

REACTIONS (2)
  - CIRCULATORY COLLAPSE [None]
  - DEHYDRATION [None]
